FAERS Safety Report 4595247-8 (Version None)
Quarter: 2005Q1

REPORT INFORMATION
  Report Type: 
  Country: None (occurrence: None)
  Receive Date: 20050225
  Receipt Date: 20050210
  Transmission Date: 20050727
  Serious: Yes (Hospitalization)
  Sender: FDA-Public Use
  Company Number: 2005UW02371

PATIENT
  Age: 77 Year
  Sex: Male
  Weight: 81.1939 kg

DRUGS (4)
  1. CRESTOR [Suspect]
     Indication: CORONARY ARTERY DISEASE
     Dosage: 5 MG QD PO
     Route: 048
     Dates: start: 20041001, end: 20050101
  2. CRESTOR [Suspect]
     Indication: HYPERLIPIDAEMIA
     Dosage: 5 MG QD PO
     Route: 048
     Dates: start: 20041001, end: 20050101
  3. ATENOLOL [Suspect]
  4. ZETIA [Concomitant]

REACTIONS (12)
  - AUTOIMMUNE HEPATITIS [None]
  - CHOLANGITIS SCLEROSING [None]
  - CHOLECYSTITIS CHRONIC [None]
  - EPSTEIN-BARR VIRUS INFECTION [None]
  - FATIGUE [None]
  - GALLBLADDER CHOLESTEROLOSIS [None]
  - HEPATITIS [None]
  - HEPATITIS VIRAL [None]
  - MALIGNANT HISTIOCYTOSIS [None]
  - MYOCARDIAL INFARCTION [None]
  - PLASMACYTOSIS [None]
  - TACHYCARDIA [None]
